FAERS Safety Report 12100403 (Version 2)
Quarter: 2016Q2

REPORT INFORMATION
  Report Type: Spontaneous
  Country: US (occurrence: US)
  Receive Date: 20160222
  Receipt Date: 20160410
  Transmission Date: 20160815
  Serious: Yes (Disabling)
  Sender: FDA-Public Use
  Company Number: US-JNJFOC-20160208935

PATIENT
  Sex: Male
  Weight: 99.79 kg

DRUGS (3)
  1. LITHIUM. [Concomitant]
     Active Substance: LITHIUM
     Indication: AFFECTIVE DISORDER
     Route: 065
  2. INVEGA TRINZA [Suspect]
     Active Substance: PALIPERIDONE PALMITATE
     Indication: SCHIZOPHRENIA
     Route: 030
  3. KLONOPIN [Concomitant]
     Active Substance: CLONAZEPAM
     Indication: ANXIETY
     Dosage: IN DIVIDED DOSE
     Route: 065
     Dates: start: 2015

REACTIONS (3)
  - Psychotic disorder [Recovering/Resolving]
  - Delusion [Unknown]
  - Drug ineffective [Unknown]
